FAERS Safety Report 7479122-7 (Version None)
Quarter: 2011Q2

REPORT INFORMATION
  Report Type: 
  Country: None (occurrence: None)
  Receive Date: 20110513
  Receipt Date: 20110426
  Transmission Date: 20111010
  Serious: Yes (Disabling)
  Sender: FDA-Public Use
  Company Number: DE-BRISTOL-MYERS SQUIBB COMPANY-15741226

PATIENT
  Age: 72 Year
  Sex: Female

DRUGS (2)
  1. IRBESARTAN AND HYDROCHLOROTHIAZIDE [Suspect]
     Indication: HYPERTENSION
     Dosage: 15MAR11-4APR11 21D 5APR11-30APR11 DOSE REDUCED TO 150MG/12.5MG 1DF:300MG/25MG
     Route: 048
     Dates: start: 20110315, end: 20110430
  2. EUTHYROX [Concomitant]
     Indication: AUTOIMMUNE THYROIDITIS

REACTIONS (3)
  - ARTHRALGIA [None]
  - MYALGIA [None]
  - VERTIGO [None]
